FAERS Safety Report 13841432 (Version 6)
Quarter: 2017Q4

REPORT INFORMATION
  Report Type: Spontaneous
  Country: US (occurrence: US)
  Receive Date: 20170807
  Receipt Date: 20171025
  Transmission Date: 20180320
  Serious: Yes (Hospitalization, Other)
  Sender: FDA-Public Use
  Company Number: US-LUNDBECK-DKLU2034855

PATIENT
  Age: 85 Year
  Sex: Male
  Weight: 73 kg

DRUGS (14)
  1. NORTHERA [Suspect]
     Active Substance: DROXIDOPA
     Route: 048
     Dates: start: 20170718, end: 20170816
  2. METAMUCIL SUGAR-FREE [Concomitant]
     Indication: PRODUCT USED FOR UNKNOWN INDICATION
     Route: 048
  3. NORTHERA [Suspect]
     Active Substance: DROXIDOPA
     Indication: AUTONOMIC NEUROPATHY
     Route: 065
     Dates: start: 20170815
  4. TYLENOL [Concomitant]
     Active Substance: ACETAMINOPHEN
     Indication: PAIN
     Route: 065
  5. PREVACID [Concomitant]
     Active Substance: LANSOPRAZOLE
     Indication: PRODUCT USED FOR UNKNOWN INDICATION
     Route: 065
  6. NORTHERA [Suspect]
     Active Substance: DROXIDOPA
     Indication: ORTHOSTATIC HYPOTENSION
     Dosage: SCHEDULE C; TITRATING
     Route: 065
     Dates: start: 20170722
  7. PRESERVISION AREDS [Concomitant]
     Active Substance: MINERALS\VITAMINS
     Indication: PRODUCT USED FOR UNKNOWN INDICATION
     Dosage: 14, 320-226-200 UNIT-MG-UNIT
     Route: 048
  8. NORTHERA [Suspect]
     Active Substance: DROXIDOPA
     Route: 048
  9. NORTHERA [Suspect]
     Active Substance: DROXIDOPA
     Route: 065
     Dates: start: 20170815
  10. CYANOCOBALAMIN. [Concomitant]
     Active Substance: CYANOCOBALAMIN
     Indication: PRODUCT USED FOR UNKNOWN INDICATION
     Route: 048
  11. ASPIRIN. [Concomitant]
     Active Substance: ASPIRIN
     Indication: PRODUCT USED FOR UNKNOWN INDICATION
     Route: 048
  12. NORTHERA [Suspect]
     Active Substance: DROXIDOPA
     Indication: DIZZINESS
     Route: 065
     Dates: start: 20170815
  13. NORTHERA [Suspect]
     Active Substance: DROXIDOPA
     Dosage: SCHEDULE C/TITRATING
     Route: 048
  14. TYLENOL [Concomitant]
     Active Substance: ACETAMINOPHEN
     Route: 048

REACTIONS (15)
  - Sepsis [Recovered/Resolved]
  - Chest pain [Recovered/Resolved]
  - Orthostatic hypotension [Not Recovered/Not Resolved]
  - Drug ineffective [Recovered/Resolved]
  - Blood pressure fluctuation [Recovered/Resolved]
  - Acute kidney injury [Recovered/Resolved]
  - Blood pressure increased [Recovered/Resolved]
  - Eye pain [Unknown]
  - Autonomic neuropathy [Unknown]
  - Photophobia [Recovered/Resolved]
  - Tremor [Unknown]
  - Neuroleptic malignant syndrome [Recovered/Resolved]
  - Dementia [Unknown]
  - Gastrooesophageal reflux disease [Not Recovered/Not Resolved]
  - Headache [Recovered/Resolved]

NARRATIVE: CASE EVENT DATE: 20170817
